FAERS Safety Report 19564774 (Version 2)
Quarter: 2021Q3

REPORT INFORMATION
  Report Type: Spontaneous
  Country: US (occurrence: US)
  Receive Date: 20210716
  Receipt Date: 20210923
  Transmission Date: 20211014
  Serious: No
  Sender: FDA-Public Use
  Company Number: US-AJANTA PHARMA USA INC.-2113906

PATIENT
  Sex: Female

DRUGS (1)
  1. CHOLESTYRAMINE (ANDA 211119) [Suspect]
     Active Substance: CHOLESTYRAMINE
     Route: 048
     Dates: start: 20210616, end: 20210616

REACTIONS (5)
  - Product physical consistency issue [Unknown]
  - Product solubility abnormal [Unknown]
  - Product substitution issue [Unknown]
  - Product taste abnormal [Unknown]
  - Product use complaint [Unknown]

NARRATIVE: CASE EVENT DATE: 2021
